FAERS Safety Report 7291621-X (Version None)
Quarter: 2011Q1

REPORT INFORMATION
  Report Type: 
  Country: None (occurrence: None)
  Receive Date: 20110214
  Receipt Date: 20110201
  Transmission Date: 20110831
  Serious: Yes (Hospitalization)
  Sender: FDA-Public Use
  Company Number: AT-ELI_LILLY_AND_COMPANY-AT201102001253

PATIENT
  Sex: Male
  Weight: 120 kg

DRUGS (1)
  1. EFFIENT [Suspect]
     Indication: ACUTE MYOCARDIAL INFARCTION
     Dosage: UNK, UNKNOWN
     Route: 065
     Dates: start: 20100926

REACTIONS (3)
  - CARDIAC FAILURE CONGESTIVE [None]
  - ANGINA PECTORIS [None]
  - CORONARY ARTERY DISEASE [None]
